FAERS Safety Report 5555094-7 (Version None)
Quarter: 2007Q4

REPORT INFORMATION
  Report Type: 
  Country: None (occurrence: None)
  Receive Date: 20071213
  Receipt Date: 20071206
  Transmission Date: 20080405
  Serious: Yes (Hospitalization)
  Sender: FDA-Public Use
  Company Number: US-ASTRAZENECA-2007UW27857

PATIENT
  Age: 18445 Day
  Sex: Female
  Weight: 47.7 kg

DRUGS (13)
  1. SEROQUEL [Suspect]
     Indication: BIPOLAR I DISORDER
     Route: 048
     Dates: start: 20040101
  2. IRON [Concomitant]
     Indication: MINERAL SUPPLEMENTATION
  3. NEXIUM [Concomitant]
     Route: 048
  4. FOLIC ACID [Concomitant]
  5. POTASSIUM CHLORIDE [Concomitant]
  6. LASIX [Concomitant]
  7. KLONOPIN [Concomitant]
  8. SPIRIVA [Concomitant]
     Route: 055
  9. ALBUTEROL [Concomitant]
     Route: 055
  10. LOMOTIL [Concomitant]
  11. FLONASE [Concomitant]
     Route: 055
  12. PHENERGAN HCL [Concomitant]
  13. VICODIN [Concomitant]

REACTIONS (2)
  - LYMPHOMA [None]
  - PNEUMONIA [None]
